FAERS Safety Report 7455765-1 (Version None)
Quarter: 2011Q2

REPORT INFORMATION
  Report Type: 
  Country: None (occurrence: None)
  Receive Date: 20110503
  Receipt Date: 20110419
  Transmission Date: 20111010
  Serious: Yes (Life-Threatening, Hospitalization, Other)
  Sender: FDA-Public Use
  Company Number: PHHY2011US25125

PATIENT
  Sex: Male
  Weight: 88.4 kg

DRUGS (2)
  1. GLEEVEC [Suspect]
     Indication: CHRONIC MYELOID LEUKAEMIA
     Dosage: 600 MG, DAILY
     Route: 048
     Dates: start: 20110124
  2. GLEEVEC [Suspect]
     Dosage: 400 MG,DAILY
     Route: 048
     Dates: start: 20110203, end: 20110317

REACTIONS (47)
  - PLEURAL FIBROSIS [None]
  - THROMBOCYTOPENIA [None]
  - HEPATIC CONGESTION [None]
  - PERIORBITAL OEDEMA [None]
  - JOINT SWELLING [None]
  - FATIGUE [None]
  - APHAGIA [None]
  - DYSPNOEA [None]
  - ELECTROCARDIOGRAM T WAVE INVERSION [None]
  - CARDIAC FAILURE CONGESTIVE [None]
  - RENAL FAILURE [None]
  - URINARY TRACT INFECTION [None]
  - ATELECTASIS [None]
  - BLOOD BILIRUBIN INCREASED [None]
  - RENAL CYST [None]
  - WHITE BLOOD CELL COUNT DECREASED [None]
  - DECREASED APPETITE [None]
  - LEFT VENTRICULAR DYSFUNCTION [None]
  - SUPRAVENTRICULAR TACHYCARDIA [None]
  - BUNDLE BRANCH BLOCK LEFT [None]
  - BLOOD CREATININE INCREASED [None]
  - INTERSTITIAL LUNG DISEASE [None]
  - ANAEMIA [None]
  - RASH [None]
  - WHITE BLOOD CELL COUNT INCREASED [None]
  - MYOCARDIAL INFARCTION [None]
  - HYPERHIDROSIS [None]
  - PRURITUS [None]
  - CONSTIPATION [None]
  - HYPOXIA [None]
  - ASTHENIA [None]
  - CORONARY ARTERY DISEASE [None]
  - ATRIAL FIBRILLATION [None]
  - HYPONATRAEMIA [None]
  - YELLOW SKIN [None]
  - CHOLELITHIASIS [None]
  - PANCYTOPENIA [None]
  - SOMNOLENCE [None]
  - SKIN LESION [None]
  - OCULAR ICTERUS [None]
  - PYREXIA [None]
  - ERYTHROPENIA [None]
  - CHEST DISCOMFORT [None]
  - AORTIC VALVE SCLEROSIS [None]
  - PULMONARY OEDEMA [None]
  - LUNG INFILTRATION [None]
  - JAUNDICE [None]
